FAERS Safety Report 5367547-5 (Version None)
Quarter: 2007Q2

REPORT INFORMATION
  Report Type: 
  Country: None (occurrence: None)
  Receive Date: 20070622
  Receipt Date: 20061220
  Transmission Date: 20071010
  Serious: No
  Sender: FDA-Public Use
  Company Number: US-ASTRAZENECA-2006UW28362

PATIENT
  Age: 11 Month
  Sex: Female

DRUGS (3)
  1. PULMICORT [Suspect]
     Indication: ASTHMA
     Route: 055
     Dates: start: 20061101
  2. PULMICORT [Suspect]
     Route: 055
  3. ALBUTEROL [Concomitant]

REACTIONS (1)
  - DYSPHONIA [None]
